FAERS Safety Report 19005294 (Version 3)
Quarter: 2021Q2

REPORT INFORMATION
  Report Type: Spontaneous
  Country: US (occurrence: US)
  Receive Date: 20210313
  Receipt Date: 20210520
  Transmission Date: 20210717
  Serious: No
  Sender: FDA-Public Use
  Company Number: US-JNJFOC-20210306213

PATIENT
  Age: 73 Year
  Sex: Female

DRUGS (1)
  1. WOMENS ROGAINE UNSCENTED [Suspect]
     Active Substance: MINOXIDIL
     Indication: ALOPECIA
     Dosage: DOSE: HALF OF THE CUP BUT NEEDS TO USE MORE THAN THAT BECAUSE THE FOAM BECOMES LIQUIDY
     Route: 061
     Dates: start: 20210207

REACTIONS (5)
  - Overdose [Unknown]
  - Poor quality product administered [Unknown]
  - Product formulation issue [Unknown]
  - Trichorrhexis [Unknown]
  - Alopecia [Unknown]

NARRATIVE: CASE EVENT DATE: 202102
